FAERS Safety Report 24294204 (Version 1)
Quarter: 2024Q3

REPORT INFORMATION
  Report Type: Spontaneous
  Country: US (occurrence: US)
  Receive Date: 20240906
  Receipt Date: 20240906
  Transmission Date: 20241016
  Serious: No
  Sender: DOMPE FARMACEUTICI
  Company Number: US-FARMAPROD-202308-202405-1966

PATIENT
  Sex: Female
  Weight: 66.5 kg

DRUGS (7)
  1. OXERVATE [Suspect]
     Active Substance: CENEGERMIN-BKBJ
     Indication: Neurotrophic keratopathy
     Route: 047
     Dates: start: 20231222
  2. OXERVATE [Suspect]
     Active Substance: CENEGERMIN-BKBJ
     Route: 047
     Dates: start: 20240513
  3. ARTIFICIAL TEARS [Concomitant]
     Dosage: 0.1%-0.3%
  4. VITAMINS [Concomitant]
     Active Substance: VITAMINS
  5. DOXYCYCLINE HYCLATE [Concomitant]
     Active Substance: DOXYCYCLINE HYCLATE
  6. NORETHINDRONE-E.ESTRADIOL-IRON [Concomitant]
  7. VALACYCLOVIR [Concomitant]
     Active Substance: VALACYCLOVIR HYDROCHLORIDE

REACTIONS (3)
  - Lacrimation increased [Unknown]
  - Nasal discomfort [Unknown]
  - Product dose omission issue [Unknown]
